FAERS Safety Report 6154791-2 (Version None)
Quarter: 2009Q2

REPORT INFORMATION
  Report Type: 
  Country: None (occurrence: None)
  Receive Date: 20090414
  Receipt Date: 20090406
  Transmission Date: 20091009
  Serious: Yes (Other)
  Sender: FDA-Public Use
  Company Number: PHHY2009DE13198

PATIENT
  Age: 40 Year
  Sex: Female

DRUGS (13)
  1. LEPONEX [Suspect]
     Indication: SCHIZOPHRENIA
     Dosage: 12.5 MG /DAY
     Route: 048
     Dates: start: 20090323
  2. LEPONEX [Suspect]
     Dosage: 75 MG /DAY
     Route: 048
     Dates: end: 20090403
  3. TAVOR [Concomitant]
  4. DIPIPERON [Concomitant]
  5. ZOLPIDEM [Concomitant]
  6. MICROKLIST [Concomitant]
  7. DULCOLAX [Concomitant]
  8. NOCTAMID [Concomitant]
  9. NULYTELY [Concomitant]
  10. NEUROCIL [Concomitant]
  11. SEROQUEL [Concomitant]
  12. DIAZEPAM [Concomitant]
  13. PARACETAMOL [Concomitant]

REACTIONS (4)
  - C-REACTIVE PROTEIN INCREASED [None]
  - FIBRIN D DIMER INCREASED [None]
  - NEUTROPHIL PERCENTAGE DECREASED [None]
  - PYREXIA [None]
